FAERS Safety Report 18496966 (Version 1)
Quarter: 2020Q4

REPORT INFORMATION
  Report Type: Spontaneous
  Country: CN (occurrence: CN)
  Receive Date: 20201112
  Receipt Date: 20201112
  Transmission Date: 20210114
  Serious: Yes (Other)
  Sender: FDA-Public Use
  Company Number: CN-ASTRAZENECA-2020SF46724

PATIENT
  Age: 30505 Day
  Sex: Male
  Weight: 50 kg

DRUGS (2)
  1. OXAZEPAM. [Suspect]
     Active Substance: OXAZEPAM
     Indication: INSOMNIA
     Route: 048
     Dates: start: 20201007, end: 20201019
  2. SEROQUEL [Suspect]
     Active Substance: QUETIAPINE FUMARATE
     Indication: TRANSIENT PSYCHOSIS
     Route: 048
     Dates: start: 20201010, end: 20201019

REACTIONS (3)
  - Intestinal obstruction [Recovering/Resolving]
  - Abdominal pain [Unknown]
  - Abdominal distension [Recovering/Resolving]

NARRATIVE: CASE EVENT DATE: 20201019
